FAERS Safety Report 11646048 (Version 2)
Quarter: 2015Q4

REPORT INFORMATION
  Report Type: Spontaneous
  Country: US (occurrence: US)
  Receive Date: 20151020
  Receipt Date: 20151120
  Transmission Date: 20160304
  Serious: Yes (Death)
  Sender: FDA-Public Use
  Company Number: US-ROCHE-1625520

PATIENT
  Sex: Male
  Weight: 71.28 kg

DRUGS (1)
  1. ESBRIET [Suspect]
     Active Substance: PIRFENIDONE
     Indication: IDIOPATHIC PULMONARY FIBROSIS
     Dosage: 3 CAPS ORAL TID
     Route: 048
     Dates: start: 20150401

REACTIONS (3)
  - Fatigue [Unknown]
  - Death [Fatal]
  - Decreased appetite [Unknown]
